FAERS Safety Report 15704074 (Version 1)
Quarter: 2018Q4

REPORT INFORMATION
  Report Type: Spontaneous
  Country: CA (occurrence: CA)
  Receive Date: 20181210
  Receipt Date: 20181210
  Transmission Date: 20190205
  Serious: Yes (Hospitalization)
  Sender: FDA-Public Use
  Company Number: CA-PFIZER INC-2018501513

PATIENT
  Age: 81 Year
  Sex: Female

DRUGS (5)
  1. ROBAXISAL C 1/2 [Suspect]
     Active Substance: ASPIRIN\CODEINE PHOSPHATE\METHOCARBAMOL
     Dosage: 1 DF, AS NEEDED
  2. LEVOTHYROXINE. [Concomitant]
     Active Substance: LEVOTHYROXINE
     Dosage: 50 UG, DAILY
     Route: 048
  3. ASA [Suspect]
     Active Substance: ASPIRIN
     Dosage: 3 DF, DAILY
  4. BETAMETHASONE. [Concomitant]
     Active Substance: BETAMETHASONE
     Dosage: UNK
     Route: 061
  5. ARTHROTEC [Suspect]
     Active Substance: DICLOFENAC SODIUM\MISOPROSTOL
     Dosage: 75.0 MG, 2X/DAY

REACTIONS (3)
  - Haemoglobin decreased [Recovered/Resolved]
  - Haematemesis [Recovered/Resolved]
  - Rectal haemorrhage [Recovered/Resolved]
